FAERS Safety Report 8950588 (Version 1)
Quarter: 2012Q4

REPORT INFORMATION
  Report Type: Spontaneous
  Country: GB (occurrence: None)
  Receive Date: 20121128
  Receipt Date: 20121128
  Transmission Date: 20130627
  Serious: Yes (Other)
  Sender: FDA-Public Use
  Company Number: AUR-APL-2012-04921

PATIENT
  Sex: Male

DRUGS (3)
  1. CITALOPRAM (CITALOPRAM) [Suspect]
     Indication: DRUG USE FOR UNKNOWN INDICATION
     Route: 048
  2. EBIXA [Suspect]
     Indication: DEMENTIA
     Route: 048
  3. EBIXA [Suspect]
     Indication: DEMENTIA
     Route: 048

REACTIONS (3)
  - Mental impairment [None]
  - Abnormal behaviour [None]
  - Wrong technique in drug usage process [None]
